FAERS Safety Report 9420680 (Version 2)
Quarter: 2013Q4

REPORT INFORMATION
  Report Type: Report from Study
  Country: BR (occurrence: BR)
  Receive Date: 20130725
  Receipt Date: 20131021
  Transmission Date: 20140711
  Serious: Yes (Death, Hospitalization, Other)
  Sender: FDA-Public Use
  Company Number: PHHY2013BR078810

PATIENT
  Age: 84 Year
  Sex: Male

DRUGS (8)
  1. SIRDALUD [Suspect]
     Dosage: 1 DF, DAILY
     Route: 048
     Dates: start: 201209
  2. EXELON [Suspect]
     Indication: PARKINSON^S DISEASE
     Dosage: 1 DF, DAILY
     Route: 048
  3. VOLTAREN [Suspect]
     Indication: OSTEOARTHRITIS
     Dosage: 1 DF (50 MG), DAILY
     Route: 048
  4. EXELON PATCH [Suspect]
     Indication: DEMENTIA ALZHEIMER^S TYPE
     Dosage: 2 DF, UNK
     Route: 062
  5. RENITEC [Concomitant]
     Indication: HYPERTENSION
     Dosage: 1 DF (100 MG), DAILY
     Route: 048
  6. PROLOPA [Concomitant]
     Indication: PARKINSON^S DISEASE
     Dosage: 0.5 DF, TWICE DAILY
     Dates: start: 2012
  7. BACLOFEN [Concomitant]
     Indication: DYSKINESIA
     Dosage: 1 DF, DAILY
     Route: 048
  8. MIOSAN [Concomitant]
     Indication: OSTEOARTHRITIS
     Dosage: 1 DF, DAILY
     Route: 048
     Dates: start: 201208

REACTIONS (7)
  - Lung disorder [Fatal]
  - Myocardial infarction [Fatal]
  - Pyrexia [Not Recovered/Not Resolved]
  - Eschar [Not Recovered/Not Resolved]
  - Hypotension [Not Recovered/Not Resolved]
  - Syncope [Not Recovered/Not Resolved]
  - Arthralgia [Not Recovered/Not Resolved]
